FAERS Safety Report 20745290 (Version 1)
Quarter: 2022Q2

REPORT INFORMATION
  Report Type: Spontaneous
  Country: US (occurrence: US)
  Receive Date: 20220425
  Receipt Date: 20220425
  Transmission Date: 20220721
  Serious: No
  Sender: FDA-Public Use
  Company Number: US-PFIZER INC-202101396001

PATIENT

DRUGS (1)
  1. AZITHROMYCIN [Suspect]
     Active Substance: AZITHROMYCIN
     Dosage: UNK (6 PACK)

REACTIONS (4)
  - Intentional product misuse [Unknown]
  - Nausea [Unknown]
  - Gastritis [Unknown]
  - Condition aggravated [Unknown]
